FAERS Safety Report 22166505 (Version 7)
Quarter: 2023Q2

REPORT INFORMATION
  Report Type: Report from Study
  Country: CN (occurrence: None)
  Receive Date: 20230403
  Receipt Date: 20230602
  Transmission Date: 20230722
  Serious: Yes (Hospitalization)
  Sender: FDA-Public Use
  Company Number: CN-ROCHE-3296653

PATIENT
  Age: 62 Year
  Sex: Male
  Weight: 74.5 kg

DRUGS (26)
  1. PLACEBO [Suspect]
     Active Substance: UNSPECIFIED INGREDIENT
     Indication: Small cell lung cancer extensive stage
     Dosage: DATE OF MOST RECENT DOSE OF BEVACIZUMAB/PLACEBO PRIOR TO AE/SAE ONSET 07/FEB/2023
     Route: 042
     Dates: start: 20230116
  2. ATEZOLIZUMAB [Suspect]
     Active Substance: ATEZOLIZUMAB
     Indication: Small cell lung cancer extensive stage
     Dosage: DOSE OF LAST ATEZOLIZUMAB ADMINISTERED PRIOR TO AE AND SAE ONSET 1200MG?DATE OF MOST RECENT DOSE OF
     Route: 041
     Dates: start: 20230116
  3. CARBOPLATIN [Suspect]
     Active Substance: CARBOPLATIN
     Indication: Small cell lung cancer extensive stage
     Dosage: DOSE OF LAST CARBOPLATIN ADMINISTERED PRIOR TO AE/SAE ONSET: 570 MG?DATE OF MOST RECENT DOSE OF CARB
     Route: 042
     Dates: start: 20230116
  4. ETOPOSIDE [Suspect]
     Active Substance: ETOPOSIDE
     Indication: Small cell lung cancer extensive stage
     Dosage: DOSE OF LAST ETOPOSIDE ADMINISTERED PRIOR TO AE/SAE ONSET: 140 MG?DATE OF MOST RECENT DOSE OF ETOPOS
     Route: 042
     Dates: start: 20230116
  5. FELODIPINE [Concomitant]
     Active Substance: FELODIPINE
     Indication: Hypertension
     Route: 048
     Dates: start: 2016
  6. METHYLPREDNISOLONE SODIUM SUCCINATE [Concomitant]
     Active Substance: METHYLPREDNISOLONE SODIUM SUCCINATE
     Dosage: DOSE WAS INCREASED TO 70MG IV
     Route: 042
  7. METHYLPREDNISOLONE SODIUM SUCCINATE [Concomitant]
     Active Substance: METHYLPREDNISOLONE SODIUM SUCCINATE
     Dosage: 20MG/IV/QD
     Route: 042
  8. METHYLPREDNISOLONE SODIUM SUCCINATE [Concomitant]
     Active Substance: METHYLPREDNISOLONE SODIUM SUCCINATE
     Route: 042
     Dates: start: 20230330, end: 20230330
  9. INFLIXIMAB [Concomitant]
     Active Substance: INFLIXIMAB
     Dosage: . ON 07/APR/2023 INFLIXIMAB 300MG WAS TREATED AGAIN.
  10. LEVOTHYROXINE SODIUM [Concomitant]
     Active Substance: LEVOTHYROXINE SODIUM
     Indication: Hypothyroidism
  11. SOMATOSTATIN [Concomitant]
     Active Substance: SOMATOSTATIN
     Indication: Haematochezia
     Dosage: 6MG/CIV24H
  12. SOMATOSTATIN [Concomitant]
     Active Substance: SOMATOSTATIN
     Route: 042
     Dates: start: 20230329, end: 20230329
  13. LOPERAMIDE HYDROCHLORIDE [Concomitant]
     Active Substance: LOPERAMIDE HYDROCHLORIDE
  14. PANTOPRAZOLE SODIUM [Concomitant]
     Active Substance: PANTOPRAZOLE SODIUM
     Dosage: 40MG/IVGTT/QD
     Route: 042
  15. GLUTATHIONE [Concomitant]
     Active Substance: GLUTATHIONE
     Dosage: 1.2G/IVGTT/ST FOR INJECTION
     Route: 042
  16. MAGNESIUM ISOGLYCYRRHIZINATE [Concomitant]
     Active Substance: MAGNESIUM ISOGLYCYRRHIZINATE
     Dosage: 150MG/IVGTT/ST
     Route: 042
  17. LACTOBACILLUS ACIDOPHILUS [Concomitant]
     Active Substance: LACTOBACILLUS ACIDOPHILUS
     Indication: Diarrhoea
  18. LACTOBACILLUS ACIDOPHILUS [Concomitant]
     Active Substance: LACTOBACILLUS ACIDOPHILUS
     Route: 048
     Dates: start: 20230329
  19. PHLOROGLUCINOL [Concomitant]
     Active Substance: PHLOROGLUCINOL
     Dosage: 80MG/IVGTT/ST
     Route: 042
  20. PHLOROGLUCINOL [Concomitant]
     Active Substance: PHLOROGLUCINOL
     Route: 042
     Dates: start: 20230223, end: 20230224
  21. OMEPRAZOLE SODIUM [Concomitant]
     Active Substance: OMEPRAZOLE SODIUM
     Dosage: 40MG/IVGTT/ST
     Route: 042
  22. OMEPRAZOLE SODIUM [Concomitant]
     Active Substance: OMEPRAZOLE SODIUM
     Route: 042
     Dates: start: 20230329, end: 20230331
  23. OMEPRAZOLE SODIUM [Concomitant]
     Active Substance: OMEPRAZOLE SODIUM
     Route: 042
     Dates: start: 20230223, end: 20230223
  24. THROMBOPOIETIN [Concomitant]
     Active Substance: THROMBOPOIETIN
     Indication: Platelet count decreased
     Route: 058
     Dates: start: 20230405, end: 20230405
  25. THROMBOPOIETIN [Concomitant]
     Active Substance: THROMBOPOIETIN
     Route: 058
     Dates: start: 20230403, end: 20230403
  26. THROMBOPOIETIN [Concomitant]
     Active Substance: THROMBOPOIETIN
     Route: 058
     Dates: start: 20230328, end: 20230401

REACTIONS (1)
  - Colitis ulcerative [Recovering/Resolving]

NARRATIVE: CASE EVENT DATE: 20230223
